FAERS Safety Report 10467638 (Version 1)
Quarter: 2014Q3

REPORT INFORMATION
  Report Type: Spontaneous
  Country: US (occurrence: US)
  Receive Date: 20140922
  Receipt Date: 20140922
  Transmission Date: 20150326
  Serious: Yes (Hospitalization)
  Sender: FDA-Public Use
  Company Number: US-GLAXOSMITHKLINE-A1090059A

PATIENT
  Sex: Female

DRUGS (1)
  1. PROMACTA [Suspect]
     Active Substance: ELTROMBOPAG OLAMINE
     Indication: PLATELET DISORDER
     Dosage: 50MG UNKNOWN
     Route: 065
     Dates: start: 20121120

REACTIONS (3)
  - Platelet transfusion [Unknown]
  - Investigation [Unknown]
  - Cardiac operation [Unknown]
